FAERS Safety Report 7087104-2 (Version None)
Quarter: 2010Q4

REPORT INFORMATION
  Report Type: 
  Country: None (occurrence: None)
  Receive Date: 20101106
  Receipt Date: 20101025
  Transmission Date: 20110411
  Serious: No
  Sender: FDA-Public Use
  Company Number: US-WYE-H18344710

PATIENT
  Sex: Female
  Weight: 65.83 kg

DRUGS (3)
  1. PRISTIQ [Suspect]
     Indication: DEPRESSION
     Route: 048
     Dates: start: 20100901, end: 20100901
  2. PRISTIQ [Suspect]
     Route: 048
     Dates: start: 20100901
  3. NORVASC [Concomitant]

REACTIONS (1)
  - DRUG EFFECT DECREASED [None]
